FAERS Safety Report 7701255-8 (Version None)
Quarter: 2011Q3

REPORT INFORMATION
  Report Type: 
  Country: None (occurrence: None)
  Receive Date: 20110822
  Receipt Date: 20110812
  Transmission Date: 20111222
  Serious: Yes (Hospitalization)
  Sender: FDA-Public Use
  Company Number: BR-GLAXOSMITHKLINE-B0710889A

PATIENT
  Sex: Female
  Weight: 84.5 kg

DRUGS (1)
  1. RETIGABINE [Suspect]
     Indication: PARTIAL SEIZURES
     Dosage: 300MG THREE TIMES PER DAY
     Route: 048
     Dates: start: 20070525

REACTIONS (1)
  - BACK PAIN [None]
